FAERS Safety Report 7114013-2 (Version None)
Quarter: 2010Q4

REPORT INFORMATION
  Report Type: 
  Country: None (occurrence: None)
  Receive Date: 20101119
  Receipt Date: 20101108
  Transmission Date: 20110411
  Serious: Yes (Death, Hospitalization)
  Sender: FDA-Public Use
  Company Number: B0629900A

PATIENT
  Age: 21 Year
  Sex: Male

DRUGS (10)
  1. ADVAIR DISKUS 100/50 [Suspect]
     Indication: ASTHMA
     Route: 055
     Dates: start: 20050201
  2. SEREVENT [Suspect]
  3. PULMICORT [Concomitant]
  4. ALBUTEROL [Concomitant]
  5. FLONASE [Concomitant]
  6. VENTOLIN [Concomitant]
  7. PROAIR HFA [Concomitant]
  8. SINGULAIR [Concomitant]
  9. AZMACORT [Concomitant]
  10. MAXAIR [Concomitant]

REACTIONS (2)
  - ACUTE RESPIRATORY FAILURE [None]
  - ASTHMA [None]
